FAERS Safety Report 9548179 (Version 1)
Quarter: 2013Q2

REPORT INFORMATION
  Report Type: Spontaneous
  Country: US (occurrence: None)
  Receive Date: 20130627
  Receipt Date: 20130627
  Transmission Date: 20140414
  Serious: Yes (Other)
  Sender: FDA-Public Use
  Company Number: 1000043597

PATIENT
  Age: 84 Year
  Sex: Female

DRUGS (1)
  1. LINZESS [Suspect]
     Indication: ABDOMINAL PAIN UPPER
     Dosage: 1 IN 1 D
     Route: 048
     Dates: start: 20130319

REACTIONS (2)
  - Off label use [None]
  - Diarrhoea [None]
